FAERS Safety Report 7547136-4 (Version None)
Quarter: 2011Q2

REPORT INFORMATION
  Report Type: 
  Country: None (occurrence: None)
  Receive Date: 20110614
  Receipt Date: 20110607
  Transmission Date: 20111010
  Serious: Yes (Hospitalization)
  Sender: FDA-Public Use
  Company Number: FR-SANOFI-AVENTIS-2011SA036677

PATIENT
  Age: 87 Year
  Sex: Male

DRUGS (2)
  1. CALCIPARINE [Interacting]
     Route: 058
     Dates: start: 20110504
  2. PLAVIX [Suspect]
     Route: 048

REACTIONS (4)
  - POST PROCEDURAL HAEMATOMA [None]
  - ARTERIOVENOUS FISTULA ANEURYSM [None]
  - MELAENA [None]
  - DRUG INTERACTION [None]
